FAERS Safety Report 9993622 (Version 1)
Quarter: 2014Q1

REPORT INFORMATION
  Report Type: Spontaneous
  Country: JP (occurrence: JP)
  Receive Date: 20140310
  Receipt Date: 20140310
  Transmission Date: 20141002
  Serious: Yes (Other)
  Sender: FDA-Public Use
  Company Number: JP-B.I. PHARMACEUTICALS,INC./RIDGEFIELD-2014-BI-10488NB

PATIENT
  Age: 73 Year
  Sex: Male

DRUGS (3)
  1. PRAZAXA [Suspect]
     Indication: ATRIAL FIBRILLATION
     Route: 048
     Dates: start: 20131002, end: 20131010
  2. SUNRYTHM [Concomitant]
     Dosage: NR
     Route: 065
  3. HALFDIGOXIN [Concomitant]
     Dosage: NR
     Route: 065

REACTIONS (1)
  - Transient ischaemic attack [Recovered/Resolved]
